FAERS Safety Report 17598775 (Version 1)
Quarter: 2020Q1

REPORT INFORMATION
  Report Type: Spontaneous
  Country: JP (occurrence: JP)
  Receive Date: 20200330
  Receipt Date: 20200330
  Transmission Date: 20200409
  Serious: Yes (Other)
  Sender: FDA-Public Use
  Company Number: JP-ABBVIE-20K-087-3340071-00

PATIENT
  Age: 56 Year
  Sex: Male

DRUGS (1)
  1. KALETRA [Suspect]
     Active Substance: LOPINAVIR\RITONAVIR
     Indication: CORONA VIRUS INFECTION
     Route: 065

REACTIONS (5)
  - Pneumonia viral [Unknown]
  - Off label use [Unknown]
  - Endotracheal intubation [Unknown]
  - Acute respiratory distress syndrome [Unknown]
  - Corona virus infection [Unknown]
